FAERS Safety Report 9034435 (Version 1)
Quarter: 2013Q1

REPORT INFORMATION
  Report Type: Spontaneous
  Country: BE (occurrence: None)
  Receive Date: 20130111
  Receipt Date: 20130111
  Transmission Date: 20140127
  Serious: Yes (Hospitalization)
  Sender: FDA-Public Use
  Company Number: B0856989A

PATIENT
  Age: 46 Year
  Sex: Female

DRUGS (4)
  1. LAMICTAL (FORMULATION UNKNOWN)(LAMOTRIGINE)? [Suspect]
     Indication: CONVULSION
  2. GABAPENTIN (FORMULATION UNKNOWN)(GABAPENTIN) [Suspect]
     Indication: CONVULSION
  3. LEVETIRACETAM (FORMULATION UNKNOWN) (LEVETIRACETAM) [Suspect]
  4. VALPROIC ACID (FORMULATION UNKNOWN)VALNROIC ACID) [Suspect]
     Indication: CONVULSION

REACTIONS (7)
  - Hypothermia [None]
  - Decreased appetite [None]
  - Apathy [None]
  - Oxygen saturation decreased [None]
  - Hypotension [None]
  - Mental status changes [None]
  - Motor dysfunction [None]
